FAERS Safety Report 10413686 (Version 1)
Quarter: 2014Q3

REPORT INFORMATION
  Report Type: Spontaneous
  Country: US (occurrence: US)
  Receive Date: 20140827
  Receipt Date: 20140827
  Transmission Date: 20150326
  Serious: Yes (Life-Threatening, Hospitalization)
  Sender: FDA-Public Use
  Company Number: PHEH2014US016882

PATIENT
  Sex: Female

DRUGS (4)
  1. METFORMIN [Concomitant]
     Active Substance: METFORMIN HYDROCHLORIDE
     Dosage: UNK UKN, UNK
  2. CRESTOR [Concomitant]
     Active Substance: ROSUVASTATIN CALCIUM
     Dosage: UNK UKN, UNK
  3. STARLIX [Suspect]
     Active Substance: NATEGLINIDE
     Dosage: UNK UKN, UNK
     Dates: start: 2004
  4. STARLIX [Suspect]
     Active Substance: NATEGLINIDE
     Dosage: 60 MG, TID AS NEEDED
     Dates: start: 2012

REACTIONS (5)
  - Fall [Unknown]
  - Hip fracture [Unknown]
  - Blood cholesterol decreased [Unknown]
  - Drug hypersensitivity [Unknown]
  - Accident [Unknown]

NARRATIVE: CASE EVENT DATE: 2009
